FAERS Safety Report 6776751-0 (Version None)
Quarter: 2010Q2

REPORT INFORMATION
  Report Type: 
  Country: None (occurrence: None)
  Receive Date: 20100617
  Receipt Date: 20100617
  Transmission Date: 20101027
  Serious: Yes (Life-Threatening, Hospitalization)
  Sender: FDA-Public Use
  Company Number: None

PATIENT
  Age: 89 Year
  Sex: Female

DRUGS (13)
  1. AMIODARONE HCL [Suspect]
     Indication: VENTRICULAR TACHYCARDIA
     Dosage: AMIODARONE ONE TIME IV
     Route: 042
     Dates: start: 20100214, end: 20100214
  2. AMIODARONE HCL [Suspect]
     Dosage: AMIODARONE Q12H PO
     Route: 048
     Dates: start: 20100215, end: 20100217
  3. APAP TAB [Concomitant]
  4. DOCUSATE [Concomitant]
  5. BISACODYL [Concomitant]
  6. DONEPEZIL HCL [Concomitant]
  7. HEPARIN [Concomitant]
  8. ASPIRIN [Concomitant]
  9. CLOPIDOGREL [Concomitant]
  10. SIMVASTATIN [Concomitant]
  11. METOPROLOL TARTRATE [Concomitant]
  12. AMLODIPINE [Concomitant]
  13. LACTULOSE [Concomitant]

REACTIONS (3)
  - ATRIAL FIBRILLATION [None]
  - TRANSAMINASES INCREASED [None]
  - VENTRICULAR TACHYCARDIA [None]
